FAERS Safety Report 4371386-1 (Version None)
Quarter: 2004Q2

REPORT INFORMATION
  Report Type: 
  Country: None (occurrence: None)
  Receive Date: 20040601
  Receipt Date: 20040405
  Transmission Date: 20050107
  Serious: No
  Sender: FDA-Public Use
  Company Number: 701844

PATIENT
  Age: 50 Year
  Sex: Female

DRUGS (1)
  1. AMEVIVE [Suspect]

REACTIONS (1)
  - LYMPHOCYTE MORPHOLOGY ABNORMAL [None]
